FAERS Safety Report 8579742-2 (Version None)
Quarter: 2012Q3

REPORT INFORMATION
  Report Type: 
  Country: None (occurrence: None)
  Receive Date: 20120808
  Receipt Date: 20120803
  Transmission Date: 20120928
  Serious: Yes (Other)
  Sender: FDA-Public Use
  Company Number: CHPA2012BR017260

PATIENT
  Sex: Male
  Weight: 90 kg

DRUGS (2)
  1. CATAFLAM [Suspect]
     Indication: CONTUSION
     Dosage: UNK, UNK
  2. CATAFLAM [Suspect]
     Dosage: 5 SPRAYS, UNK

REACTIONS (1)
  - HYPERTENSION [None]
